FAERS Safety Report 7024175-3 (Version None)
Quarter: 2010Q4

REPORT INFORMATION
  Report Type: 
  Country: None (occurrence: None)
  Receive Date: 20101001
  Receipt Date: 20100928
  Transmission Date: 20110411
  Serious: No
  Sender: FDA-Public Use
  Company Number: NZ-ROCHE-721921

PATIENT

DRUGS (2)
  1. CARBOPLATIN (NON-ROCHE/NON-COMPARATOR) [Suspect]
     Indication: PRODUCT USED FOR UNKNOWN INDICATION
     Route: 065
  2. DOCETAXEL (NON-ROCHE/NON-COMPARATOR) [Suspect]
     Indication: PRODUCT USED FOR UNKNOWN INDICATION
     Route: 065

REACTIONS (1)
  - DRUG INTOLERANCE [None]
